FAERS Safety Report 9827658 (Version 2)
Quarter: 2014Q1

REPORT INFORMATION
  Report Type: Spontaneous
  Country: US (occurrence: US)
  Receive Date: 20140117
  Receipt Date: 20140313
  Transmission Date: 20141002
  Serious: No
  Sender: FDA-Public Use
  Company Number: US-009507513-1401USA007638

PATIENT
  Age: 82 Year
  Sex: Female
  Weight: 59.86 kg

DRUGS (3)
  1. OXYTROL FOR WOMEN [Suspect]
     Indication: BLADDER IRRITATION
     Dosage: 1 DF, UNKNOWN
     Route: 062
     Dates: start: 20131222, end: 20131225
  2. LEVOTHYROXINE SODIUM [Concomitant]
     Indication: HYPOTHYROIDISM
     Dosage: 100 MICROGRAM, QD
  3. IBUPROFEN [Concomitant]
     Indication: BACK PAIN
     Dosage: UNK, UNKNOWN

REACTIONS (3)
  - Rash erythematous [Recovered/Resolved]
  - Pruritus [Recovered/Resolved]
  - Off label use [Unknown]
